FAERS Safety Report 10663061 (Version 2)
Quarter: 2014Q4

REPORT INFORMATION
  Report Type: Spontaneous
  Country: US (occurrence: US)
  Receive Date: 20141218
  Receipt Date: 20141218
  Transmission Date: 20150529
  Serious: No
  Sender: FDA-Public Use
  Company Number: US-GLAXOSMITHKLINE-A1052070A

PATIENT

DRUGS (8)
  1. CALCIUM LACTATE [Concomitant]
     Active Substance: CALCIUM LACTATE
  2. SUPPLEMENT [Concomitant]
     Active Substance: UNSPECIFIED INGREDIENT
     Indication: PULMONARY FUNCTION TEST
  3. ANTRONEX [Concomitant]
  4. THYROID SUPPLEMENT [Concomitant]
  5. COREG CR [Suspect]
     Active Substance: CARVEDILOL PHOSPHATE
     Indication: CARDIAC FAILURE CONGESTIVE
     Route: 048
     Dates: start: 2008
  6. D-MANNOSE [Concomitant]
  7. CLEAR LUNGS [Concomitant]
  8. DIGITALIS [Concomitant]
     Active Substance: DIGITALIS

REACTIONS (3)
  - Product quality issue [Unknown]
  - Drug dispensing error [Unknown]
  - Dyspnoea [Unknown]

NARRATIVE: CASE EVENT DATE: 20131130
